FAERS Safety Report 7762578-X (Version None)
Quarter: 2011Q3

REPORT INFORMATION
  Report Type: 
  Country: None (occurrence: None)
  Receive Date: 20110920
  Receipt Date: 20110916
  Transmission Date: 20111222
  Serious: Yes (Hospitalization)
  Sender: FDA-Public Use
  Company Number: US-GLAXOSMITHKLINE-A0882744A

PATIENT
  Age: 51 Year
  Sex: Female
  Weight: 95 kg

DRUGS (8)
  1. HYDROCHLOROTHIAZIDE [Concomitant]
  2. METOPROLOL TARTRATE [Concomitant]
  3. LIPITOR [Concomitant]
  4. METFORMIN HCL [Concomitant]
  5. ZANTAC [Concomitant]
  6. AVANDIA [Suspect]
     Indication: DIABETES MELLITUS
     Dosage: 4MG TWICE PER DAY
     Route: 048
     Dates: start: 20020101, end: 20071001
  7. INSULIN [Concomitant]
  8. LISINOPRIL [Concomitant]

REACTIONS (3)
  - MYOCARDIAL INFARCTION [None]
  - ACUTE CORONARY SYNDROME [None]
  - CORONARY ARTERY DISEASE [None]
